FAERS Safety Report 10780491 (Version 1)
Quarter: 2015Q1

REPORT INFORMATION
  Report Type: Other
  Country: US (occurrence: US)
  Receive Date: 20150210
  Receipt Date: 20150210
  Transmission Date: 20150721
  Serious: Yes (Death)
  Sender: FDA-Public Use
  Company Number: US-FRI-1000074420

PATIENT
  Age: 30 Year
  Sex: Male

DRUGS (10)
  1. METHADONE [Suspect]
     Active Substance: METHADONE HYDROCHLORIDE
  2. CITALOPRAM [Suspect]
     Active Substance: CITALOPRAM HYDROBROMIDE
  3. HYDROCODONE [Suspect]
     Active Substance: HYDROCODONE
  4. COCAINE [Suspect]
     Active Substance: COCAINE
  5. OXYCODONE [Suspect]
     Active Substance: OXYCODONE
  6. DIPHENHYDRAMINE [Suspect]
     Active Substance: DIPHENHYDRAMINE
  7. ACETAMINOPHEN. [Suspect]
     Active Substance: ACETAMINOPHEN
  8. HEROIN [Suspect]
     Active Substance: DIACETYLMORPHINE
  9. DOXYLAMINE [Suspect]
     Active Substance: DOXYLAMINE
  10. QUININE [Suspect]
     Active Substance: QUININE

REACTIONS (3)
  - Respiratory arrest [None]
  - Drug abuse [Fatal]
  - Cardiac arrest [None]
